FAERS Safety Report 6736460-0 (Version None)
Quarter: 2010Q2

REPORT INFORMATION
  Report Type: 
  Country: None (occurrence: None)
  Receive Date: 20100521
  Receipt Date: 20070423
  Transmission Date: 20101027
  Serious: Yes (Other)
  Sender: FDA-Public Use
  Company Number: US-BRISTOL-MYERS SQUIBB COMPANY-13756713

PATIENT
  Age: 52 Year
  Sex: Male
  Weight: 120 kg

DRUGS (5)
  1. GLUCOPHAGE [Suspect]
     Indication: DIABETES MELLITUS
     Route: 048
     Dates: start: 20070420, end: 20070421
  2. RELAFEN [Concomitant]
  3. OXYBUTYNIN [Concomitant]
  4. DIOVAN [Concomitant]
  5. PRILOSEC [Concomitant]

REACTIONS (3)
  - EUPHORIC MOOD [None]
  - FEELING OF DESPAIR [None]
  - SUICIDAL IDEATION [None]
